FAERS Safety Report 9540215 (Version 1)
Quarter: 2013Q3

REPORT INFORMATION
  Report Type: Spontaneous
  Country: JP (occurrence: JP)
  Receive Date: 20130920
  Receipt Date: 20130920
  Transmission Date: 20140515
  Serious: Yes (Death, Hospitalization)
  Sender: FDA-Public Use
  Company Number: PHHY2013JP104187

PATIENT
  Age: 73 Year
  Sex: Female

DRUGS (3)
  1. METHOTREXATE [Suspect]
     Indication: RHEUMATOID ARTHRITIS
     Dosage: 8 MG, (5-8 MG/WEEK FOR 10 AND 6 YEARS)
  2. PREDNISONE [Suspect]
     Indication: RHEUMATOID ARTHRITIS
     Dosage: 10 MG, (5-10 MG/DAY)
     Dates: end: 200504
  3. INFLIXIMAB [Suspect]
     Indication: RHEUMATOID ARTHRITIS
     Dosage: 150 MG, EVERY 8 WEEKS

REACTIONS (7)
  - Hepatic failure [Fatal]
  - Hepatic function abnormal [Fatal]
  - Hepatic encephalopathy [Recovering/Resolving]
  - Hepatitis fulminant [Not Recovered/Not Resolved]
  - Jaundice [Not Recovered/Not Resolved]
  - Hepatitis B [Recovering/Resolving]
  - Drug ineffective [Unknown]
